FAERS Safety Report 9882189 (Version 1)
Quarter: 2014Q1

REPORT INFORMATION
  Report Type: Report from Study
  Country: BR (occurrence: BR)
  Receive Date: 20140207
  Receipt Date: 20140207
  Transmission Date: 20141002
  Serious: Yes (Death)
  Sender: FDA-Public Use
  Company Number: BR-INCYTE CORPORATION-2014IN000266

PATIENT
  Age: 57 Year
  Sex: Female
  Weight: 55.3 kg

DRUGS (3)
  1. INC424 [Suspect]
     Dosage: 15 MG, BID
     Route: 048
     Dates: start: 20131005
  2. PROPRANOLOL [Concomitant]
     Dosage: UNK
     Dates: start: 20131230
  3. CAPTOPRIL [Concomitant]
     Dosage: UNK
     Dates: end: 20131230

REACTIONS (3)
  - Death [Fatal]
  - Lung consolidation [Unknown]
  - Pneumonia [Unknown]
